FAERS Safety Report 21481380 (Version 1)
Quarter: 2022Q4

REPORT INFORMATION
  Report Type: Spontaneous
  Country: US (occurrence: US)
  Receive Date: 20221019
  Receipt Date: 20221019
  Transmission Date: 20230113
  Serious: No
  Sender: FDA-Public Use
  Company Number: US-CELLTRION INC.-2022US001782

PATIENT

DRUGS (1)
  1. INFLECTRA [Suspect]
     Active Substance: INFLIXIMAB-DYYB
     Indication: Product used for unknown indication
     Dosage: 400 MILLIGRAM, AT 0, 2, + 6 WKS, THEN Q 8 WKS; QUANTITY: 3 (FOR INDUCTION)
     Route: 065

REACTIONS (1)
  - Off label use [Unknown]
